FAERS Safety Report 6634810-7 (Version None)
Quarter: 2010Q1

REPORT INFORMATION
  Report Type: 
  Country: None (occurrence: None)
  Receive Date: 20100315
  Receipt Date: 20100302
  Transmission Date: 20100710
  Serious: Yes (Hospitalization, Other)
  Sender: FDA-Public Use
  Company Number: US-PFIZER INC-2010027871

PATIENT
  Sex: Male
  Weight: 101.13 kg

DRUGS (3)
  1. DILANTIN [Suspect]
     Dosage: 300MG AM, 200MG PM
     Dates: end: 20100226
  2. CARBATROL [Concomitant]
     Dosage: UNK
  3. LORAZEPAM [Concomitant]
     Dosage: 2 MG, UNK

REACTIONS (6)
  - BALANCE DISORDER [None]
  - DIZZINESS [None]
  - FALL [None]
  - FEELING ABNORMAL [None]
  - IMPAIRED DRIVING ABILITY [None]
  - OVERDOSE [None]
